FAERS Safety Report 5634675-6 (Version None)
Quarter: 2008Q1

REPORT INFORMATION
  Report Type: 
  Country: None (occurrence: None)
  Receive Date: 20080131
  Receipt Date: 20071106
  Transmission Date: 20080703
  Serious: No
  Sender: FDA-Public Use
  Company Number: 163-21880-07110409

PATIENT
  Age: 77 Year
  Sex: Male

DRUGS (3)
  1. REVLIMID [Suspect]
     Indication: MULTIPLE MYELOMA
     Dosage: 25 MG, DAILY FOR 21 DAYS, ORAL ; 40 MG, ONCE DAILY FOR 21 DAYS, ORAL ; ONCE DAILY FOR 21 DAYS, ORAL
     Route: 048
     Dates: start: 20060718, end: 20061201
  2. REVLIMID [Suspect]
     Indication: MULTIPLE MYELOMA
     Dosage: 25 MG, DAILY FOR 21 DAYS, ORAL ; 40 MG, ONCE DAILY FOR 21 DAYS, ORAL ; ONCE DAILY FOR 21 DAYS, ORAL
     Route: 048
     Dates: start: 20061229, end: 20070101
  3. REVLIMID [Suspect]
     Indication: MULTIPLE MYELOMA
     Dosage: 25 MG, DAILY FOR 21 DAYS, ORAL ; 40 MG, ONCE DAILY FOR 21 DAYS, ORAL ; ONCE DAILY FOR 21 DAYS, ORAL
     Route: 048
     Dates: start: 20070411

REACTIONS (2)
  - ARTHRITIS [None]
  - MALAISE [None]
